FAERS Safety Report 8523813-3 (Version None)
Quarter: 2012Q3

REPORT INFORMATION
  Report Type: 
  Country: None (occurrence: None)
  Receive Date: 20120720
  Receipt Date: 20120716
  Transmission Date: 20120928
  Serious: Yes (Other)
  Sender: FDA-Public Use
  Company Number: GB-PFIZER INC-2012170528

PATIENT
  Age: 63 Year
  Sex: Male

DRUGS (2)
  1. CARDURA [Suspect]
     Dosage: 16 MG, 1X/DAY
  2. CARDURA [Suspect]
     Indication: HYPERTENSION
     Dosage: 8 MG, 1X/DAY

REACTIONS (10)
  - MALAISE [None]
  - INCREASED TENDENCY TO BRUISE [None]
  - NASAL DISORDER [None]
  - BLOOD PRESSURE INADEQUATELY CONTROLLED [None]
  - LOSS OF CONSCIOUSNESS [None]
  - DYSPNOEA [None]
  - MUSCULAR WEAKNESS [None]
  - OFF LABEL USE [None]
  - FALL [None]
  - HEADACHE [None]
